FAERS Safety Report 5502499-6 (Version None)
Quarter: 2007Q4

REPORT INFORMATION
  Report Type: 
  Country: None (occurrence: None)
  Receive Date: 20071030
  Receipt Date: 20071025
  Transmission Date: 20080405
  Serious: Yes (Other)
  Sender: FDA-Public Use
  Company Number: US-PFIZER INC-2007090277

PATIENT
  Sex: Female
  Weight: 93 kg

DRUGS (6)
  1. DETROL LA [Suspect]
     Indication: HYPERTONIC BLADDER
     Dates: start: 20071001, end: 20071001
  2. SYNTHROID [Concomitant]
     Indication: CONGENITAL HYPOTHYROIDISM
  3. FOSAMAX [Concomitant]
  4. ASPIRIN [Concomitant]
  5. CALCIUM [Concomitant]
  6. VITAMIN CAP [Concomitant]

REACTIONS (2)
  - EYE SWELLING [None]
  - PERIORBITAL OEDEMA [None]
